FAERS Safety Report 25478268 (Version 2)
Quarter: 2025Q3

REPORT INFORMATION
  Report Type: Spontaneous
  Country: JP (occurrence: JP)
  Receive Date: 20250625
  Receipt Date: 20250708
  Transmission Date: 20251021
  Serious: No
  Sender: MERCK SHARP & DOHME LLC
  Company Number: JP-009507513-2298529

PATIENT
  Sex: Male
  Weight: 33.1 kg

DRUGS (1)
  1. LAGEVRIO [Suspect]
     Active Substance: MOLNUPIRAVIR
     Indication: COVID-19 treatment
     Dates: start: 20250611, end: 20250615

REACTIONS (2)
  - Wrong technique in product usage process [Unknown]
  - Incorrect route of product administration [Unknown]
